FAERS Safety Report 25198816 (Version 4)
Quarter: 2025Q2

REPORT INFORMATION
  Report Type: Report from Study
  Country: US (occurrence: US)
  Receive Date: 20250415
  Receipt Date: 20250620
  Transmission Date: 20250716
  Serious: Yes (Death, Other)
  Sender: SUNOVION
  Company Number: US-SUMITOMO PHARMA SWITZERLAND GMBH-2025SPA003296

PATIENT

DRUGS (26)
  1. ORGOVYX [Suspect]
     Active Substance: RELUGOLIX
     Indication: Prostate cancer
     Dosage: 360 MG, SINGLE
     Route: 048
     Dates: start: 20250314, end: 20250314
  2. ORGOVYX [Suspect]
     Active Substance: RELUGOLIX
     Dosage: 120 MG, QD
     Route: 048
     Dates: start: 20250315
  3. A + d Zinc Oxide [Concomitant]
     Route: 061
  4. ALLOPURINOL [Concomitant]
     Active Substance: ALLOPURINOL
     Route: 065
  5. ATORVASTATIN [Concomitant]
     Active Substance: ATORVASTATIN
     Route: 065
  6. BUMETANIDE [Concomitant]
     Active Substance: BUMETANIDE
     Route: 065
  7. CASODEX [Concomitant]
     Active Substance: BICALUTAMIDE
     Route: 065
  8. COLACE [Concomitant]
     Active Substance: DOCUSATE SODIUM
     Route: 065
  9. DILTIAZEM [Concomitant]
     Active Substance: DILTIAZEM
     Route: 065
  10. INSULIN ASPART [Concomitant]
     Active Substance: INSULIN ASPART
     Route: 058
  11. JARDIANCE [Concomitant]
     Active Substance: EMPAGLIFLOZIN
     Route: 065
  12. LYCOPENE [Concomitant]
     Active Substance: LYCOPENE
     Route: 065
  13. MINERALS\VITAMINS [Concomitant]
     Active Substance: MINERALS\VITAMINS
     Route: 065
  14. NYAMYC [Concomitant]
     Active Substance: NYSTATIN
     Route: 061
  15. Os-Cal Calcium + D3 [Concomitant]
     Route: 065
  16. Foot relief [Concomitant]
     Route: 061
  17. ROBITUSSIN (GUAIFENESIN) [Concomitant]
     Active Substance: GUAIFENESIN
     Route: 065
  18. SODIUM BICARBONATE [Concomitant]
     Active Substance: SODIUM BICARBONATE
     Route: 065
  19. TAMSULOSIN [Concomitant]
     Active Substance: TAMSULOSIN
     Route: 065
  20. TRESIBA [Concomitant]
     Active Substance: INSULIN DEGLUDEC
     Route: 058
  21. TYLENOL EXTRA STRENGTH [Concomitant]
     Active Substance: ACETAMINOPHEN
     Route: 065
  22. WARFARIN [Concomitant]
     Active Substance: WARFARIN
     Route: 065
  23. ZINC GLUCONATE [Concomitant]
     Active Substance: ZINC GLUCONATE
     Route: 065
  24. SPIRONOLACTONE [Concomitant]
     Active Substance: SPIRONOLACTONE
     Route: 065
  25. CALCITRIOL [Concomitant]
     Active Substance: CALCITRIOL
     Route: 065
  26. Athletes Foot external [Concomitant]
     Route: 065

REACTIONS (5)
  - Death [Fatal]
  - Decreased appetite [Unknown]
  - Blood glucose decreased [Unknown]
  - Fatigue [Unknown]
  - Weight increased [Not Recovered/Not Resolved]
